FAERS Safety Report 14670767 (Version 1)
Quarter: 2018Q1

REPORT INFORMATION
  Report Type: Spontaneous
  Country: US (occurrence: US)
  Receive Date: 20180321
  Receipt Date: 20180321
  Transmission Date: 20180509
  Serious: Yes (Hospitalization)
  Sender: FDA-Public Use
  Company Number: None

PATIENT
  Age: 15 Year
  Sex: Male

DRUGS (9)
  1. NICOTINAMIDE [Concomitant]
     Active Substance: NIACINAMIDE
  2. VELCADE [Concomitant]
     Active Substance: BORTEZOMIB
  3. TACROLIMUS 1MG CAP ACCORD [Suspect]
     Active Substance: TACROLIMUS
     Indication: RENAL TRANSPLANT
     Route: 048
     Dates: start: 20161008
  4. AMLODIPINE [Concomitant]
     Active Substance: AMLODIPINE BESYLATE
  5. VITAMIN D [Concomitant]
     Active Substance: CHOLECALCIFEROL
  6. CYCLOPHOSPHAMIDE 50 MG CAP WEST-WARD [Suspect]
     Active Substance: CYCLOPHOSPHAMIDE
     Indication: RENAL TRANSPLANT
     Dosage: D 1 AND 8 OF 21DS QW PO
     Route: 048
     Dates: start: 20170907
  7. PROPRANEDIOL [Concomitant]
  8. MULTI VIT [Concomitant]
  9. FELODIPINE. [Concomitant]
     Active Substance: FELODIPINE

REACTIONS (1)
  - Hospitalisation [None]

NARRATIVE: CASE EVENT DATE: 201803
